FAERS Safety Report 5041271-0 (Version None)
Quarter: 2006Q2

REPORT INFORMATION
  Report Type: 
  Country: None (occurrence: None)
  Receive Date: 20060623
  Receipt Date: 20060620
  Transmission Date: 20061013
  Serious: Yes (Death)
  Sender: FDA-Public Use
  Company Number: 222835

PATIENT
  Age: 72 Year
  Sex: Female
  Weight: 70 kg

DRUGS (2)
  1. TNKASE [Suspect]
     Indication: CEREBROVASCULAR ACCIDENT
     Dosage: SEE IMAGE
     Route: 040
     Dates: start: 20060302
  2. ACTIVASE [Suspect]
     Indication: CEREBROVASCULAR ACCIDENT
     Dosage: 7 MG, SINGLE, IV BOLUS
     Route: 042
     Dates: start: 20060302

REACTIONS (3)
  - CEREBRAL HAEMORRHAGE [None]
  - OVERDOSE [None]
  - WRONG DRUG ADMINISTERED [None]
